FAERS Safety Report 7091916-9 (Version None)
Quarter: 2010Q4

REPORT INFORMATION
  Report Type: 
  Country: None (occurrence: None)
  Receive Date: 20101109
  Receipt Date: 20101103
  Transmission Date: 20110411
  Serious: Yes (Life-Threatening, Hospitalization)
  Sender: FDA-Public Use
  Company Number: GB-CELGENEUS-167-C5013-10091506

PATIENT
  Sex: Male
  Weight: 93.1 kg

DRUGS (24)
  1. CC-5013\PLACEBO [Suspect]
     Indication: PROSTATE CANCER
     Route: 048
     Dates: start: 20100910, end: 20100920
  2. DOCETAXEL [Suspect]
     Indication: PROSTATE CANCER
     Route: 065
     Dates: start: 20100910
  3. PREDNISONE [Suspect]
     Indication: PROSTATE CANCER
     Route: 065
     Dates: start: 20100910, end: 20100918
  4. PREDNISONE [Suspect]
     Route: 065
     Dates: start: 20100922
  5. BENDROFLUMETHIAZIDE [Concomitant]
     Route: 048
  6. ZOLADEX [Concomitant]
     Route: 030
  7. LANSOPRAZOLE [Concomitant]
     Route: 048
  8. GABAPENTIN [Concomitant]
     Indication: ANALGESIC THERAPY
     Route: 048
  9. DICLOFENAC SODIUM [Concomitant]
     Indication: ANALGESIC THERAPY
     Route: 048
  10. MACROGOL [Concomitant]
     Indication: CONSTIPATION
     Route: 048
  11. OXYCONTIN [Concomitant]
     Indication: PAIN
     Route: 048
     Dates: end: 20100909
  12. OXYCONTIN [Concomitant]
     Route: 048
     Dates: start: 20100909
  13. ORAMORPH SR [Concomitant]
     Indication: PAIN
     Dosage: 100MG/5ML   2.5ML
     Route: 048
     Dates: end: 20100909
  14. OXYNORM [Concomitant]
     Indication: ANALGESIC THERAPY
     Route: 048
     Dates: start: 20100909
  15. OXYNORM [Concomitant]
     Route: 048
     Dates: start: 20100916, end: 20100916
  16. OXYNORM [Concomitant]
     Dosage: 30MG + 20MG
     Route: 048
     Dates: start: 20100917, end: 20100918
  17. OXYNORM [Concomitant]
     Route: 048
     Dates: start: 20100919, end: 20100919
  18. OXYNORM [Concomitant]
     Route: 048
     Dates: start: 20100920, end: 20100920
  19. OXYNORM [Concomitant]
     Route: 048
     Dates: start: 20100921, end: 20100921
  20. OXYNORM [Concomitant]
     Route: 048
     Dates: start: 20100921, end: 20100921
  21. OXYNORM [Concomitant]
     Route: 048
     Dates: start: 20100922
  22. OXYNORM [Concomitant]
     Route: 048
     Dates: start: 20100923
  23. CIPROFLOXACIN [Concomitant]
     Indication: ANTIBIOTIC THERAPY
     Route: 048
     Dates: start: 20100914
  24. ZOMETA [Concomitant]
     Route: 051
     Dates: start: 20100914, end: 20100914

REACTIONS (2)
  - NEUTROPENIC SEPSIS [None]
  - PAIN [None]
